FAERS Safety Report 19044266 (Version 1)
Quarter: 2021Q1

REPORT INFORMATION
  Report Type: Spontaneous
  Country: JP (occurrence: JP)
  Receive Date: 20210323
  Receipt Date: 20210323
  Transmission Date: 20210420
  Serious: Yes (Hospitalization, Other)
  Sender: FDA-Public Use
  Company Number: JP-PFIZER INC-2021253120

PATIENT
  Age: 59 Year
  Sex: Female

DRUGS (1)
  1. METHOTREXATE SODIUM. [Suspect]
     Active Substance: METHOTREXATE SODIUM
     Indication: RHEUMATOID ARTHRITIS
     Dosage: 4 MG, DAILY
     Route: 048

REACTIONS (6)
  - Acute kidney injury [Unknown]
  - Septic shock [Unknown]
  - Acute respiratory distress syndrome [Unknown]
  - Inappropriate schedule of product administration [Unknown]
  - Pancytopenia [Unknown]
  - Pneumonia pneumococcal [Unknown]
